FAERS Safety Report 20410746 (Version 1)
Quarter: 2022Q1

REPORT INFORMATION
  Report Type: Spontaneous
  Country: US (occurrence: None)
  Receive Date: 20220131
  Receipt Date: 20220131
  Transmission Date: 20220423
  Serious: Yes (Life-Threatening, Hospitalization, Other)
  Sender: FDA-Public Use
  Company Number: None

PATIENT
  Age: 17 Year
  Sex: Female

DRUGS (1)
  1. DEPO-PROVERA [Suspect]
     Active Substance: MEDROXYPROGESTERONE ACETATE

REACTIONS (7)
  - Dyspnoea [None]
  - Blindness [None]
  - Gait inability [None]
  - Fall [None]
  - Hypersensitivity [None]
  - Near death experience [None]
  - Anaphylactic shock [None]

NARRATIVE: CASE EVENT DATE: 20021224
